FAERS Safety Report 6704596-6 (Version None)
Quarter: 2010Q2

REPORT INFORMATION
  Report Type: 
  Country: None (occurrence: None)
  Receive Date: 20100430
  Receipt Date: 20100423
  Transmission Date: 20101027
  Serious: Yes (Hospitalization, Other)
  Sender: FDA-Public Use
  Company Number: PHHO2009KR13231

PATIENT
  Sex: Male
  Weight: 58.1 kg

DRUGS (2)
  1. AFINITOR [Suspect]
     Indication: GASTRIC CANCER
     Dosage: 10 MG DAILY
     Route: 048
     Dates: start: 20090410, end: 20091004
  2. AFINITOR [Suspect]
     Dosage: 10 MG DAILY
     Dates: start: 20091020

REACTIONS (14)
  - ABDOMINAL DISTENSION [None]
  - ABDOMINAL PAIN [None]
  - ANAL ABSCESS [None]
  - ASCITES [None]
  - HAEMANGIOMA OF LIVER [None]
  - ILEUS [None]
  - LIVER INJURY [None]
  - LOCALISED INTRAABDOMINAL FLUID COLLECTION [None]
  - LYMPHADENOPATHY [None]
  - MALIGNANT NEOPLASM PROGRESSION [None]
  - METASTASES TO ADRENALS [None]
  - METASTASES TO BONE [None]
  - METASTASES TO LUNG [None]
  - METASTASES TO PERITONEUM [None]
